FAERS Safety Report 12313719 (Version 1)
Quarter: 2016Q2

REPORT INFORMATION
  Report Type: Spontaneous
  Country: CA (occurrence: CA)
  Receive Date: 20160428
  Receipt Date: 20160428
  Transmission Date: 20160815
  Serious: Yes (Other)
  Sender: FDA-Public Use
  Company Number: CA-009507513-1604CAN016569

PATIENT
  Age: 25 Year
  Sex: Female

DRUGS (1)
  1. DESOGESTREL (+) ETHINYL ESTRADIOL [Suspect]
     Active Substance: DESOGESTREL\ETHINYL ESTRADIOL
     Indication: CONTRACEPTION
     Dosage: 1 DOSAGE FORMS (1 DOSAGE FORMS, 1 IN 1 D)
     Route: 048

REACTIONS (14)
  - Dysmenorrhoea [Recovering/Resolving]
  - Throat irritation [Recovering/Resolving]
  - Capillary fragility [Recovering/Resolving]
  - Anxiety [Recovering/Resolving]
  - Musculoskeletal pain [Recovering/Resolving]
  - Menstruation irregular [Recovering/Resolving]
  - Neck pain [Recovering/Resolving]
  - Thrombosis [Recovering/Resolving]
  - Generalised erythema [Recovering/Resolving]
  - Urticaria [Recovering/Resolving]
  - Ear pruritus [Recovering/Resolving]
  - Nasal congestion [Recovering/Resolving]
  - Back pain [Recovering/Resolving]
  - Hypersensitivity [Recovering/Resolving]
